FAERS Safety Report 10073610 (Version 2)
Quarter: 2014Q2

REPORT INFORMATION
  Report Type: Spontaneous
  Country: FR (occurrence: FR)
  Receive Date: 20140411
  Receipt Date: 20140411
  Transmission Date: 20141212
  Serious: Yes (Hospitalization, Other)
  Sender: FDA-Public Use
  Company Number: FR-PFIZER INC-2013074144

PATIENT
  Age: 58 Year
  Sex: Male

DRUGS (7)
  1. TAHOR [Suspect]
     Indication: MYOCARDIAL ISCHAEMIA
     Dosage: 40 MG, DAILY
     Route: 048
     Dates: end: 20130213
  2. TENORMINE [Concomitant]
     Dosage: 50 MG, UNK
     Dates: start: 20120912
  3. KARDEGIC [Concomitant]
     Dosage: UNK
     Dates: start: 20120912
  4. LASILIX [Concomitant]
     Indication: ASCITES
     Dosage: UNK
     Dates: start: 20130129, end: 20130131
  5. LASILIX [Concomitant]
     Indication: PORTAL HYPERTENSION
  6. ALDACTONE [Concomitant]
     Indication: ASCITES
     Dosage: UNK
     Dates: start: 20130129, end: 20130131
  7. ALDACTONE [Concomitant]
     Indication: PORTAL HYPERTENSION

REACTIONS (8)
  - Rhabdomyolysis [Recovered/Resolved]
  - Renal failure [Recovered/Resolved]
  - Hepatitis fulminant [Unknown]
  - Cytomegalovirus viraemia [Unknown]
  - Pneumonia cytomegaloviral [Unknown]
  - Cytomegalovirus colitis [Unknown]
  - Pseudomonas infection [Unknown]
  - Haematoma [Unknown]
